FAERS Safety Report 8698572 (Version 2)
Quarter: 2012Q4

REPORT INFORMATION
  Report Type: 
  Country: BR (occurrence: BR)
  Receive Date: 20120802
  Receipt Date: 20120913
  Transmission Date: 20130627
  Serious: Yes (Other)
  Sender: FDA-Public Use
  Company Number: BR-PFIZER INC-2012185663

PATIENT
  Age: 56 Year
  Sex: Female
  Weight: 64 kg

DRUGS (5)
  1. CHAMPIX [Suspect]
     Indication: TOBACCO USER
     Dosage: UNK; daily (in the morning and at night)
     Route: 048
     Dates: start: 20120704
  2. CHAMPIX [Suspect]
     Indication: WITHDRAWAL SYNDROME
  3. ALPRAZOLAM [Concomitant]
     Indication: SLEEP DISORDER
     Dosage: 1 mg once at night
     Dates: start: 20120704
  4. TOPIRAMATE [Concomitant]
     Indication: DEPRESSION
     Dosage: 25 mg, once at night
     Dates: start: 20120704
  5. TOPIRAMATE [Concomitant]
     Indication: HEADACHE

REACTIONS (12)
  - Hallucination [Not Recovered/Not Resolved]
  - Colour blindness acquired [Not Recovered/Not Resolved]
  - Nausea [Recovering/Resolving]
  - Tremor [Not Recovered/Not Resolved]
  - Headache [Not Recovered/Not Resolved]
  - Pyrexia [Not Recovered/Not Resolved]
  - Retching [Recovering/Resolving]
  - Decreased appetite [Not Recovered/Not Resolved]
  - Abdominal discomfort [Recovering/Resolving]
  - Abnormal dreams [Not Recovered/Not Resolved]
  - Tinnitus [Unknown]
  - High density lipoprotein decreased [Unknown]
